FAERS Safety Report 13203008 (Version 11)
Quarter: 2022Q4

REPORT INFORMATION
  Report Type: Spontaneous
  Country: US (occurrence: US)
  Receive Date: 20170209
  Receipt Date: 20221003
  Transmission Date: 20230113
  Serious: Yes (Other)
  Sender: FDA-Public Use
  Company Number: US-PFIZER INC-2017054855

PATIENT
  Age: 69 Year
  Sex: Female

DRUGS (4)
  1. PREMARIN [Suspect]
     Active Substance: ESTROGENS, CONJUGATED
     Dosage: 1/2-1GM  DAILY
     Route: 067
  2. PREMARIN [Suspect]
     Active Substance: ESTROGENS, CONJUGATED
     Dosage: 1 G PER DAY
     Route: 067
  3. MEDROXYPROGESTERONE [Concomitant]
     Active Substance: MEDROXYPROGESTERONE
     Dosage: 5 MG, UNK (DAY1-14/MONTH)
  4. AMANTADINE [Concomitant]
     Active Substance: AMANTADINE
     Indication: Gastrooesophageal reflux disease
     Dosage: 150 MG, 2X/DAY

REACTIONS (8)
  - Device issue [Unknown]
  - Bacterial vulvovaginitis [Unknown]
  - Fungal infection [Unknown]
  - Off label use [Unknown]
  - Vulvovaginal burning sensation [Unknown]
  - Vulvovaginal candidiasis [Recovering/Resolving]
  - Eye disorder [Unknown]
  - Abdominal pain lower [Unknown]
